FAERS Safety Report 8015521-2 (Version None)
Quarter: 2011Q4

REPORT INFORMATION
  Report Type: 
  Country: None (occurrence: None)
  Receive Date: 20111223
  Receipt Date: 20111212
  Transmission Date: 20120403
  Serious: Yes (Disabling)
  Sender: FDA-Public Use
  Company Number: FK201102966

PATIENT
  Age: 63 Year
  Sex: Female

DRUGS (2)
  1. METHOTREXATE [Suspect]
     Indication: PRODUCT USED FOR UNKNOWN INDICATION
     Dates: start: 20111101
  2. SULFASALAZINE (SULFASALAZINE)(SULFASALAZINE) [Concomitant]

REACTIONS (3)
  - PALPITATIONS [None]
  - ABDOMINAL DISCOMFORT [None]
  - DYSPNOEA [None]
